FAERS Safety Report 8976389 (Version 1)
Quarter: 2012Q4

REPORT INFORMATION
  Report Type: 
  Country: GB (occurrence: GB)
  Receive Date: 20121220
  Receipt Date: 20121220
  Transmission Date: 20130627
  Serious: Yes (Hospitalization, Other)
  Sender: FDA-Public Use
  Company Number: GB-PFIZER INC-2012318379

PATIENT
  Age: 47 Year
  Sex: Male

DRUGS (3)
  1. SUMATRIPTAN SUCCINATE [Suspect]
     Dosage: UNK
     Route: 058
     Dates: start: 19911211
  2. ERGOTAMINE [Concomitant]
     Indication: CLUSTER HEADACHES
     Dosage: UNK
  3. METHYSERGIDE [Concomitant]
     Indication: CLUSTER HEADACHES
     Dosage: UNK

REACTIONS (2)
  - Chest pain [Unknown]
  - Electrocardiogram ST segment elevation [Unknown]
